FAERS Safety Report 14431934 (Version 1)
Quarter: 2018Q1

REPORT INFORMATION
  Report Type: Other
  Country: GB (occurrence: GB)
  Receive Date: 20180124
  Receipt Date: 20180124
  Transmission Date: 20180509
  Serious: Yes (Other)
  Sender: FDA-Public Use
  Company Number: GB-CELLTRION INC.-2018GB017474

PATIENT

DRUGS (6)
  1. HUMIRA [Suspect]
     Active Substance: ADALIMUMAB
     Indication: CROHN^S DISEASE
     Dosage: 40 MG EVERY 2 WEEKS
     Route: 058
     Dates: start: 20171006, end: 20171201
  2. XARELTO [Concomitant]
     Active Substance: RIVAROXABAN
  3. REMSIMA [Suspect]
     Active Substance: INFLIXIMAB
     Dosage: 40 MG EVERY 2 WEEKS
     Route: 058
     Dates: start: 20171201, end: 20171201
  4. REMSIMA [Suspect]
     Active Substance: INFLIXIMAB
     Indication: CROHN^S DISEASE
     Dosage: 40 MG EVERY 2 WEEKS
     Route: 058
     Dates: start: 20171006, end: 20171006
  5. HYDROCORTISONE. [Concomitant]
     Active Substance: HYDROCORTISONE
     Route: 065
  6. TINZAPARIN [Concomitant]
     Active Substance: TINZAPARIN

REACTIONS (4)
  - Lung neoplasm malignant [Unknown]
  - Inappropriate schedule of drug administration [Unknown]
  - Incorrect dose administered [Unknown]
  - Incorrect route of drug administration [Unknown]

NARRATIVE: CASE EVENT DATE: 201712
